FAERS Safety Report 6633907-5 (Version None)
Quarter: 2010Q1

REPORT INFORMATION
  Report Type: 
  Country: None (occurrence: None)
  Receive Date: 20100315
  Receipt Date: 20090929
  Transmission Date: 20100710
  Serious: No
  Sender: FDA-Public Use
  Company Number: US-BRISTOL-MYERS SQUIBB COMPANY-14800478

PATIENT
  Sex: Female

DRUGS (3)
  1. NYSTATIN [Suspect]
     Indication: CANDIDIASIS
  2. FLAGYL [Suspect]
  3. CLEOCIN [Suspect]
     Dosage: CAPS

REACTIONS (7)
  - ALLERGY TO METALS [None]
  - BREATH ODOUR [None]
  - DROOLING [None]
  - HAEMATURIA [None]
  - MALAISE [None]
  - PRURITUS [None]
  - RASH [None]
